FAERS Safety Report 4775009-9 (Version None)
Quarter: 2005Q3

REPORT INFORMATION
  Report Type: 
  Country: None (occurrence: None)
  Receive Date: 20050920
  Receipt Date: 20050909
  Transmission Date: 20060218
  Serious: Yes (Life-Threatening)
  Sender: FDA-Public Use
  Company Number: 217673

PATIENT
  Age: 74 Year
  Sex: Female

DRUGS (1)
  1. ACTIVASE [Suspect]
     Indication: ISCHAEMIC STROKE
     Dosage: INTRAVENOUS
     Route: 042

REACTIONS (3)
  - ANAPHYLACTIC REACTION [None]
  - MOUTH HAEMORRHAGE [None]
  - SWOLLEN TONGUE [None]
